FAERS Safety Report 21507308 (Version 2)
Quarter: 2022Q4

REPORT INFORMATION
  Report Type: Report from Study
  Country: PL (occurrence: PL)
  Receive Date: 20221026
  Receipt Date: 20221101
  Transmission Date: 20230112
  Serious: Yes (Hospitalization)
  Sender: FDA-Public Use
  Company Number: PL-GLAXOSMITHKLINE-PL2022152287

PATIENT

DRUGS (3)
  1. BELANTAMAB MAFODOTIN [Suspect]
     Active Substance: BELANTAMAB MAFODOTIN
     Indication: Plasma cell myeloma
     Dosage: 1.9 MG/KG, CYC (100.7 MG) DOSE OF GSK2857916, ROUTE = INTRAVENOUS
     Route: 042
     Dates: start: 20220929, end: 20220929
  2. BELANTAMAB MAFODOTIN [Suspect]
     Active Substance: BELANTAMAB MAFODOTIN
     Dosage: 1.9 MG/KG, CYC (100.7 MG) DOSE OF GSK2857916, ROUTE = INTRAVENOUS
     Route: 042
     Dates: start: 20221020, end: 20221020
  3. HYDROXYZINE HYDROCHLORIDE [Concomitant]
     Active Substance: HYDROXYZINE HYDROCHLORIDE
     Indication: Product used for unknown indication
     Dosage: 0.025 G (FREQUENCY = ONCE)
     Route: 048
     Dates: start: 20221020, end: 20221020

REACTIONS (1)
  - Non-cardiac chest pain [Recovered/Resolved]

NARRATIVE: CASE EVENT DATE: 20221020
